FAERS Safety Report 6962989-6 (Version None)
Quarter: 2010Q3

REPORT INFORMATION
  Report Type: 
  Country: None (occurrence: None)
  Receive Date: 20100823
  Receipt Date: 20100625
  Transmission Date: 20110219
  Serious: Yes (Other)
  Sender: FDA-Public Use
  Company Number: 015014

PATIENT
  Sex: Male
  Weight: 66.2 kg

DRUGS (5)
  1. CIMZIA [Suspect]
     Indication: CROHN'S DISEASE
     Dosage: (400 MG, INDUCATION DOSE SUBCUTANEOUS)
     Route: 058
     Dates: start: 20100618
  2. METHOTREXATE [Concomitant]
  3. SULFASALAZINE [Concomitant]
  4. CIPROFLOXACIN [Concomitant]
  5. PREDNISONE [Concomitant]

REACTIONS (1)
  - ARTHRALGIA [None]
